FAERS Safety Report 5365654-4 (Version None)
Quarter: 2007Q2

REPORT INFORMATION
  Report Type: 
  Country: None (occurrence: None)
  Receive Date: 20070621
  Receipt Date: 20070614
  Transmission Date: 20071010
  Serious: Yes (Hospitalization)
  Sender: FDA-Public Use
  Company Number: US-ELI_LILLY_AND_COMPANY-US200706003486

PATIENT
  Age: 60 Year
  Sex: Male

DRUGS (46)
  1. BYETTA [Suspect]
     Indication: DIABETES MELLITUS NON-INSULIN-DEPENDENT
     Dosage: 5 UG, 2/D
     Route: 058
     Dates: start: 20060801, end: 20061001
  2. BYETTA [Suspect]
     Dosage: 10 UG, 2/D
     Route: 058
     Dates: start: 20061001, end: 20070607
  3. BYETTA [Suspect]
     Dosage: 10 UG, 2/D
     Route: 058
     Dates: start: 20070609
  4. GLIPIZIDE [Concomitant]
     Indication: DIABETES MELLITUS NON-INSULIN-DEPENDENT
     Dosage: 10 MG, 2/D
     Dates: start: 20041115
  5. AVANDIA [Concomitant]
     Indication: DIABETES MELLITUS NON-INSULIN-DEPENDENT
     Dosage: UNK, UNKNOWN
     Dates: start: 20060101, end: 20070607
  6. ACTOS [Concomitant]
     Indication: DIABETES MELLITUS NON-INSULIN-DEPENDENT
     Dosage: 30 MG, DAILY (1/D)
     Dates: start: 20070607
  7. ZYRTEC [Concomitant]
     Dosage: UNK, AS NEEDED
     Dates: start: 20060101, end: 20070607
  8. FEXOFENADINE [Concomitant]
     Dosage: 180 MG, AS NEEDED
     Dates: start: 20070607
  9. VENTOLIN                                /SCH/ [Concomitant]
     Dosage: 17 G, AS NEEDED
     Route: 055
     Dates: start: 19990101
  10. SEREVENT [Concomitant]
     Dosage: 13 G, 2/D
     Route: 055
     Dates: start: 20060101
  11. ALDACTONE [Concomitant]
     Dosage: 12.5 MG, DAILY (1/D)
     Dates: start: 20060301
  12. PULMICORT [Concomitant]
     Dosage: 200 UG, 2/D
     Dates: start: 20060601
  13. NASONEX [Concomitant]
     Dosage: 50 UG, EACH EVENING
     Route: 045
     Dates: start: 20060601
  14. FUROSEMIDE [Concomitant]
     Dosage: 80 MG, EACH MORNING
     Dates: start: 20020703
  15. FUROSEMIDE [Concomitant]
     Dosage: 40 MG, EACH EVENING
     Dates: start: 20020703
  16. ALLOPURINOL [Concomitant]
     Dosage: 300 MG, EACH MORNING
     Dates: start: 19890101
  17. LISINOPRIL [Concomitant]
     Dosage: 2.5 MG, EACH MORNING
     Dates: start: 20000816
  18. DIGOXIN [Concomitant]
     Dosage: 0.125 MG, DAILY (1/D)
     Dates: start: 20020506
  19. NIASPAN [Concomitant]
     Dosage: 1000 MG, EACH EVENING
     Dates: start: 20050513
  20. LYRICA [Concomitant]
     Dosage: 75 MG, 2/D
     Dates: start: 20061010
  21. PEPCID [Concomitant]
     Dosage: 20 MG, EACH EVENING
     Dates: start: 20040101
  22. METOLAZONE [Concomitant]
     Dosage: 5 MG, 5/W
     Dates: start: 20060420
  23. COREG [Concomitant]
     Dosage: 3.125 MG, 2/D
     Dates: start: 20060717
  24. POTASSIUM CHLORIDE [Concomitant]
     Dosage: 20 MEQ, DAILY (1/D)
     Dates: start: 20060520
  25. CRESTOR [Concomitant]
     Dosage: 10 MG, DAILY (1/D)
     Dates: start: 20061027
  26. TRICOR [Concomitant]
     Dosage: 145 MG, DAILY (1/D)
     Dates: start: 20061027
  27. TESTIM [Concomitant]
     Dosage: 50 UG, DAILY (1/D)
     Dates: start: 20061027
  28. FLOMAX [Concomitant]
     Dosage: 0.4 MG, EACH EVENING
     Dates: start: 20061113
  29. WARFARIN SODIUM [Concomitant]
     Dosage: 2.5 MG, DAILY (1/D)
     Dates: end: 20070601
  30. WARFARIN SODIUM [Concomitant]
     Dosage: 2.5 MG, DAILY (1/D)
     Dates: start: 20070607, end: 20070610
  31. WARFARIN SODIUM [Concomitant]
     Dosage: 7.5 MG, DAILY (1/D)
     Dates: start: 20070611, end: 20070611
  32. WARFARIN SODIUM [Concomitant]
     Dosage: 5 MG, DAILY (1/D)
     Dates: start: 20070612, end: 20070612
  33. WARFARIN SODIUM [Concomitant]
     Dosage: 2.5 MG, DAILY (1/D)
     Dates: start: 20070613
  34. CITRACAL [Concomitant]
     Dosage: 3 UNK, EACH MORNING
  35. ASCORBIC ACID [Concomitant]
     Dosage: 1000 MG, EACH MORNING
  36. VITAMIN E /00110501/ [Concomitant]
     Dosage: 1000 IU, EACH MORNING
  37. ASPIRIN [Concomitant]
     Dosage: 81 MG, EACH MORNING
  38. MULTI-VITAMIN [Concomitant]
     Dosage: 1 UNK, EACH MORNING
  39. CHROMIUM PICOLINATE [Concomitant]
     Dosage: 400 UG, EACH MORNING
  40. FISH OIL [Concomitant]
     Dosage: 1000 MG, 3/D
  41. THIAMINE HCL [Concomitant]
     Dosage: 100 MG, EACH MORNING
  42. SAW PALMETTO [Concomitant]
     Dosage: 180 MG, DAILY (1/D)
  43. SELENIUM SULFIDE [Concomitant]
     Dosage: 200 UG, EACH MORNING
  44. SELENIUM SULFIDE [Concomitant]
     Dosage: 200 UG, EACH EVENING
  45. GLUCOSAMINE [Concomitant]
     Dosage: 1500 MG, DAILY (1/D)
  46. CHONDROITIN [Concomitant]
     Dosage: 1500 MG, DAILY (1/D)

REACTIONS (2)
  - BLOOD GLUCOSE INCREASED [None]
  - TENDON INJURY [None]
